FAERS Safety Report 4917109-6 (Version None)
Quarter: 2006Q1

REPORT INFORMATION
  Report Type: 
  Country: None (occurrence: None)
  Receive Date: 20060221
  Receipt Date: 20050330
  Transmission Date: 20060701
  Serious: Yes (Hospitalization)
  Sender: FDA-Public Use
  Company Number: FR-BRISTOL-MYERS SQUIBB COMPANY-12918108

PATIENT
  Age: 33 Year
  Sex: Male

DRUGS (5)
  1. REYATAZ [Suspect]
     Indication: HIV INFECTION
     Route: 048
     Dates: start: 20041118
  2. VIDEX [Suspect]
  3. EMTRIVA [Suspect]
     Dosage: INTERRUPTED ON 15-APR-2005, RESTARTED ON UNKNOWN DATE.
     Dates: start: 20041118
  4. VIREAD [Suspect]
     Dosage: INTERRUPTED 15-APR-2005, RESTARTED UNKNOWN DATE.
     Dates: start: 20041118
  5. ASPIRIN [Concomitant]

REACTIONS (7)
  - COAGULOPATHY [None]
  - GASTROINTESTINAL HAEMORRHAGE [None]
  - MALAISE [None]
  - PORTAL HYPERTENSION [None]
  - PROTHROMBIN TIME RATIO DECREASED [None]
  - SPLENOMEGALY [None]
  - VARICES OESOPHAGEAL [None]
